FAERS Safety Report 4291440-2 (Version None)
Quarter: 2004Q1

REPORT INFORMATION
  Report Type: 
  Country: None (occurrence: None)
  Receive Date: 20040126
  Receipt Date: 20030912
  Transmission Date: 20041129
  Serious: No
  Sender: FDA-Public Use
  Company Number: USA030947133

PATIENT
  Age: 86 Year
  Sex: Female

DRUGS (2)
  1. FORTEO [Suspect]
     Indication: SPINAL FRACTURE
     Dates: start: 20030801
  2. PREDNISONE [Concomitant]

REACTIONS (1)
  - INJECTION SITE HAEMORRHAGE [None]
